FAERS Safety Report 4957872-1 (Version None)
Quarter: 2006Q1

REPORT INFORMATION
  Report Type: 
  Country: None (occurrence: None)
  Receive Date: 20060324
  Receipt Date: 20060315
  Transmission Date: 20060701
  Serious: Yes (Other)
  Sender: FDA-Public Use
  Company Number: 2006-03-0953

PATIENT
  Age: 50 Year
  Sex: Male
  Weight: 72 kg

DRUGS (3)
  1. PEG-INRON INJECTABLE POWDER (PEGINTERFERON ALFA-2B) [Suspect]
     Indication: MALIGNANT MELANOMA
     Dosage: 1 MCG/KG/WK* SUBCUTANEOUS
     Route: 058
     Dates: end: 20030215
  2. PEG-INRON INJECTABLE POWDER (PEGINTERFERON ALFA-2B) [Suspect]
     Indication: MALIGNANT MELANOMA
     Dosage: 1 MCG/KG/WK* SUBCUTANEOUS
     Route: 058
     Dates: start: 20030317, end: 20030901
  3. PEG-INRON INJECTABLE POWDER (PEGINTERFERON ALFA-2B) [Suspect]
     Indication: MALIGNANT MELANOMA
     Dosage: 1 MCG/KG/WK* SUBCUTANEOUS
     Route: 058
     Dates: end: 20030901

REACTIONS (1)
  - SKIN EXFOLIATION [None]
